FAERS Safety Report 6251176-5 (Version None)
Quarter: 2009Q2

REPORT INFORMATION
  Report Type: 
  Country: None (occurrence: None)
  Receive Date: 20090630
  Receipt Date: 20090513
  Transmission Date: 20091009
  Serious: No
  Sender: FDA-Public Use
  Company Number: US-ABBOTT-09P-163-0573152-00

PATIENT
  Sex: Male

DRUGS (6)
  1. ZEMPLAR [Suspect]
     Indication: HYPERTHYROIDISM
     Dates: start: 20090223
  2. FUROSEMIDE INTENSOL [Concomitant]
     Indication: DRUG USE FOR UNKNOWN INDICATION
  3. SENSOPAR [Concomitant]
     Indication: DRUG USE FOR UNKNOWN INDICATION
  4. COREG [Concomitant]
     Indication: DRUG USE FOR UNKNOWN INDICATION
  5. DICALTIZIM [Concomitant]
     Indication: DRUG USE FOR UNKNOWN INDICATION
  6. CALCEPT [Concomitant]
     Indication: DRUG USE FOR UNKNOWN INDICATION

REACTIONS (3)
  - ASTHENIA [None]
  - BLOOD CALCIUM INCREASED [None]
  - FATIGUE [None]
